FAERS Safety Report 6666804-X (Version None)
Quarter: 2010Q1

REPORT INFORMATION
  Report Type: 
  Country: None (occurrence: None)
  Receive Date: 20100331
  Receipt Date: 20100323
  Transmission Date: 20100710
  Serious: Yes (Disabling)
  Sender: FDA-Public Use
  Company Number: SPV1-2010-00577

PATIENT
  Age: 65 Year
  Sex: Male

DRUGS (6)
  1. FOSRENOL [Suspect]
     Indication: HYPERPHOSPHATAEMIA
     Dosage: ORAL
     Route: 048
     Dates: start: 20080226, end: 20100323
  2. CINACALCET HYDROCHLORIDE [Suspect]
     Dosage: 30 MG
     Dates: start: 20090901, end: 20100323
  3. RENAGEL [Suspect]
     Indication: HYPERPHOSPHATAEMIA
     Dosage: 800 MG, 8X/DAY
     Dates: start: 20080301
  4. PARICALCITOL (PARICALCITOL) [Concomitant]
  5. ARANESP [Concomitant]
  6. AMARYL [Concomitant]

REACTIONS (4)
  - HYPERCALCAEMIA [None]
  - MENISCUS LESION [None]
  - OSTEONECROSIS [None]
  - STRESS FRACTURE [None]
